FAERS Safety Report 17999336 (Version 1)
Quarter: 2020Q3

REPORT INFORMATION
  Report Type: Spontaneous
  Country: US (occurrence: US)
  Receive Date: 20200708
  Receipt Date: 20200708
  Transmission Date: 20201103
  Serious: Yes (Death)
  Sender: FDA-Public Use
  Company Number: None

PATIENT
  Age: 78 Year
  Sex: Male
  Weight: 75 kg

DRUGS (2)
  1. PROTAMINE [Suspect]
     Active Substance: PROTAMINE
     Indication: COAGULOPATHY
     Dosage: ?          OTHER FREQUENCY:ONCE;?
     Route: 041
     Dates: start: 20200701, end: 20200702
  2. NORMAL SALINE [Suspect]
     Active Substance: SODIUM CHLORIDE
     Indication: COAGULOPATHY
     Dosage: ?          OTHER FREQUENCY:ONCE;?
     Route: 041
     Dates: start: 20200701, end: 20200702

REACTIONS (2)
  - Right ventricular failure [None]
  - Haemodynamic instability [None]

NARRATIVE: CASE EVENT DATE: 20200702
